FAERS Safety Report 4657237-6 (Version None)
Quarter: 2005Q2

REPORT INFORMATION
  Report Type: 
  Country: None (occurrence: None)
  Receive Date: 20050506
  Receipt Date: 20050406
  Transmission Date: 20051028
  Serious: Yes (Other)
  Sender: FDA-Public Use
  Company Number: 2004235655US

PATIENT
  Age: 48 Year
  Sex: Female
  Weight: 109.7705 kg

DRUGS (13)
  1. PROVERA [Suspect]
     Indication: HORMONE REPLACEMENT THERAPY
     Dosage: ORAL
     Route: 048
     Dates: start: 19840101, end: 19980101
  2. CONJUGATED ESTROGENS [Suspect]
     Indication: HORMONE REPLACEMENT THERAPY
     Dates: start: 19840101, end: 19980101
  3. PROVELLA-14 (ESTROGENS CONJUGATED, MEDROXYPROGESTERONE ACETATE) [Suspect]
     Indication: HORMONE REPLACEMENT THERAPY
     Dates: start: 19840101, end: 19980101
  4. DIGOXIN [Concomitant]
  5. WARFARIN SODIUM [Concomitant]
  6. NEUROBION FOR INJECTION (CYANOCOBALAMIN, PYRIDOXINE HYDROCHLORIDE, THI [Concomitant]
  7. GARLIC (GARLIC) [Concomitant]
  8. FOLIC ACID [Concomitant]
  9. POTASSIUM ACETATE [Concomitant]
  10. SPIRONOLACTONE [Concomitant]
  11. METOLAZONE [Concomitant]
  12. FEXOFENADINE HYDROCHLORIDE [Concomitant]
  13. SERTRALINE HCL [Concomitant]

REACTIONS (2)
  - MYOCARDIAL INFARCTION [None]
  - PULMONARY EMBOLISM [None]
